FAERS Safety Report 6891498-8 (Version None)
Quarter: 2010Q3

REPORT INFORMATION
  Report Type: 
  Country: None (occurrence: None)
  Receive Date: 20100731
  Receipt Date: 20071002
  Transmission Date: 20110219
  Serious: No
  Sender: FDA-Public Use
  Company Number: US-PFIZER INC-2007020841

PATIENT
  Sex: Female

DRUGS (4)
  1. ANTIVERT [Suspect]
  2. ACTOS [Concomitant]
  3. HYDROCHLOROTHIAZIDE [Concomitant]
  4. LISINOPRIL [Concomitant]

REACTIONS (1)
  - HAIR GROWTH ABNORMAL [None]
